APPROVED DRUG PRODUCT: CETYLEV
Active Ingredient: ACETYLCYSTEINE
Strength: 500MG
Dosage Form/Route: TABLET, EFFERVESCENT;ORAL
Application: N207916 | Product #001
Applicant: ARBOR PHARMACEUTICALS LLC
Approved: Jan 29, 2016 | RLD: Yes | RS: No | Type: DISCN

PATENTS:
Patent 8747894 | Expires: May 8, 2032
Patent 9561204 | Expires: May 8, 2032
Patent 9427421 | Expires: May 8, 2032